FAERS Safety Report 13127486 (Version 14)
Quarter: 2018Q3

REPORT INFORMATION
  Report Type: Spontaneous
  Country: US (occurrence: US)
  Receive Date: 20170118
  Receipt Date: 20180827
  Transmission Date: 20181010
  Serious: Yes (Hospitalization)
  Sender: FDA-Public Use
  Company Number: US-ACTELION-A-NJ2017-148575

PATIENT
  Age: 58 Year
  Sex: Female
  Weight: 93.42 kg

DRUGS (4)
  1. VELETRI [Suspect]
     Active Substance: EPOPROSTENOL
     Dosage: 31.25 NG/KG, PER MIN
     Route: 042
  2. TRACLEER [Suspect]
     Active Substance: BOSENTAN
     Dosage: 125 MG, BID
     Route: 048
  3. VELETRI [Suspect]
     Active Substance: EPOPROSTENOL
     Indication: PULMONARY ARTERIAL HYPERTENSION
     Dosage: 31.25 NG/KG, PER MIN
     Route: 042
     Dates: start: 20150305
  4. TRACLEER [Suspect]
     Active Substance: BOSENTAN
     Indication: PULMONARY ARTERIAL HYPERTENSION
     Dosage: 125 MG, BID
     Route: 048
     Dates: start: 20150722

REACTIONS (19)
  - Catheter site vesicles [Unknown]
  - Limb injury [Unknown]
  - Dyspnoea exertional [Not Recovered/Not Resolved]
  - Catheter site pain [Unknown]
  - Dyspnoea at rest [None]
  - Pain in extremity [Unknown]
  - Catheter site erythema [Unknown]
  - Infusion site scab [Unknown]
  - Inflammation [Unknown]
  - Pneumonia [Unknown]
  - Dyspnoea [Unknown]
  - Cellulitis [Unknown]
  - Catheter site inflammation [Unknown]
  - Erythema [Unknown]
  - Catheter site haemorrhage [Unknown]
  - Catheter site discharge [Unknown]
  - Oxygen saturation decreased [Unknown]
  - Pulmonary arterial hypertension [Unknown]
  - Fatigue [Unknown]

NARRATIVE: CASE EVENT DATE: 20170111
